FAERS Safety Report 6934414-2 (Version None)
Quarter: 2010Q3

REPORT INFORMATION
  Report Type: 
  Country: None (occurrence: None)
  Receive Date: 20100820
  Receipt Date: 20100813
  Transmission Date: 20110219
  Serious: Yes (Hospitalization)
  Sender: FDA-Public Use
  Company Number: B0599347A

PATIENT
  Sex: Female
  Weight: 47.9 kg

DRUGS (3)
  1. LAPATINIB [Suspect]
     Indication: BREAST CANCER
     Dosage: 1000MG PER DAY
     Route: 048
     Dates: start: 20091007
  2. TRASTUZUMAB [Suspect]
     Indication: BREAST CANCER
     Dosage: 2MGK PER DAY
     Route: 042
     Dates: start: 20091007
  3. DOCETAXEL [Suspect]
     Indication: BREAST CANCER
     Dosage: 75MGM2 PER DAY
     Route: 042
     Dates: start: 20091007

REACTIONS (5)
  - CHILLS [None]
  - DIARRHOEA [None]
  - PYREXIA [None]
  - RASH [None]
  - VITAL FUNCTIONS ABNORMAL [None]
